FAERS Safety Report 15632832 (Version 3)
Quarter: 2019Q2

REPORT INFORMATION
  Report Type: Spontaneous
  Country: GB (occurrence: GB)
  Receive Date: 20181119
  Receipt Date: 20190401
  Transmission Date: 20190711
  Serious: Yes (Other)
  Sender: FDA-Public Use
  Company Number: GB-PFIZER INC-2018467300

PATIENT
  Age: 81 Year
  Sex: Female
  Weight: 70 kg

DRUGS (10)
  1. SALICYLIC ACID. [Concomitant]
     Active Substance: SALICYLIC ACID
     Dosage: 1 DF, 1X/DAY
     Dates: start: 20181022
  2. CETIRIZINE [Concomitant]
     Active Substance: CETIRIZINE HYDROCHLORIDE
     Dosage: 1 DF, 1X/DAY
     Dates: start: 20180727, end: 20180824
  3. GLUCOSAMINE SULFATE [Concomitant]
     Active Substance: GLUCOSAMINE SULFATE
     Dosage: 4 DF, 1X/DAY
     Dates: start: 20151013
  4. LEVOTHYROXINE. [Concomitant]
     Active Substance: LEVOTHYROXINE
     Dosage: 1 DF, 1X/DAY
     Dates: start: 20151013
  5. PARACETAMOL [Concomitant]
     Active Substance: ACETAMINOPHEN
     Dosage: 2 DF, AS NEEDED (FOUR TIMES DAILY)
     Dates: start: 20151013
  6. DIPROBASE [PARAFFIN, LIQUID;WHITE SOFT PARAFFIN] [Concomitant]
     Dosage: UNK, AS NEEDED (APPLY TO SKIN FREQUENTLY AND LIBERALLY, AS OFTE...)
     Dates: start: 20160129
  7. CLOPIDOGREL SULFATE [Suspect]
     Active Substance: CLOPIDOGREL BISULFATE
     Dosage: UNK (LAST PRESCRIPTION 14FEB2018)
     Dates: start: 20170818
  8. PHENOXYMETHYLPENICILLIN [Concomitant]
     Active Substance: PENICILLIN V
     Dosage: 2 DF, 1X/DAY
     Dates: start: 20151013
  9. AMLODIPINE BESILATE [Suspect]
     Active Substance: AMLODIPINE BESYLATE
     Indication: HYPERTENSION
     Dosage: 5 MG, UNK (LAST PRESCRIPTION 14FEB2018)
     Dates: start: 20170818
  10. FENOFIBRATE. [Suspect]
     Active Substance: FENOFIBRATE
     Dosage: 267 MG (LAST PRESCRIPTION 14FEB2018)
     Route: 048
     Dates: start: 20171020

REACTIONS (6)
  - Pruritus generalised [Unknown]
  - Jaundice [Unknown]
  - Lichen nitidus [Not Recovered/Not Resolved]
  - Psoriasis [Recovering/Resolving]
  - Cough [Unknown]
  - Rash [Unknown]

NARRATIVE: CASE EVENT DATE: 201803
